FAERS Safety Report 9113351 (Version 2)
Quarter: 2013Q1

REPORT INFORMATION
  Report Type: Spontaneous
  Country: SE (occurrence: SE)
  Receive Date: 20130208
  Receipt Date: 20130208
  Transmission Date: 20140127
  Serious: Yes (Disabling)
  Sender: FDA-Public Use
  Company Number: SE-009507513-1301SWE009690

PATIENT
  Age: 52 Year
  Sex: Female

DRUGS (3)
  1. NASONEX [Suspect]
     Indication: NASAL CONGESTION
     Dosage: 2 DF, TID
     Route: 045
     Dates: start: 20130113, end: 20130114
  2. NASONEX [Suspect]
     Indication: SINUSITIS
  3. CORTISONE [Concomitant]
     Dosage: 6.25 MG, QD

REACTIONS (1)
  - Ageusia [Not Recovered/Not Resolved]
